FAERS Safety Report 20634785 (Version 1)
Quarter: 2022Q1

REPORT INFORMATION
  Report Type: Spontaneous
  Country: US (occurrence: US)
  Receive Date: 20220325
  Receipt Date: 20220325
  Transmission Date: 20220424
  Serious: Yes (Life-Threatening, Hospitalization, Other)
  Sender: FDA-Public Use
  Company Number: US-SA-SAC20220321001329

PATIENT
  Sex: Male

DRUGS (1)
  1. DUPIXENT [Suspect]
     Active Substance: DUPILUMAB
     Indication: Extradural abscess
     Dosage: 300 MG/2ML, QOW
     Route: 058

REACTIONS (2)
  - Eosinophilic pneumonia [Unknown]
  - Product use in unapproved indication [Unknown]
